FAERS Safety Report 20573455 (Version 7)
Quarter: 2023Q2

REPORT INFORMATION
  Report Type: Spontaneous
  Country: US (occurrence: US)
  Receive Date: 20220309
  Receipt Date: 20230607
  Transmission Date: 20230721
  Serious: Yes (Disabling, Other)
  Sender: FDA-Public Use
  Company Number: US-ORGANON-O2203USA000739

PATIENT
  Sex: Male

DRUGS (4)
  1. SINGULAIR [Suspect]
     Active Substance: MONTELUKAST SODIUM
     Indication: Asthma
     Dosage: 1 TABLET, ONCE A DAY
     Route: 048
     Dates: start: 2018, end: 2021
  2. REMERON [Suspect]
     Active Substance: MIRTAZAPINE
     Indication: Depression
     Dosage: UNK
     Route: 048
  3. REMERON [Suspect]
     Active Substance: MIRTAZAPINE
     Indication: Insomnia
     Dosage: 30 MG 1X BEFORE BED
     Route: 048
  4. REMERON [Suspect]
     Active Substance: MIRTAZAPINE
     Indication: Anxiety

REACTIONS (20)
  - Neuropsychiatric symptoms [Recovering/Resolving]
  - Bipolar disorder [Recovering/Resolving]
  - Intentional self-injury [Recovering/Resolving]
  - Anxiety [Recovering/Resolving]
  - Attention deficit hyperactivity disorder [Recovering/Resolving]
  - Social avoidant behaviour [Recovering/Resolving]
  - Feeling abnormal [Recovering/Resolving]
  - Psychotic disorder [Recovering/Resolving]
  - Sleep disorder [Recovering/Resolving]
  - Mood swings [Recovering/Resolving]
  - Generalised anxiety disorder [Recovering/Resolving]
  - Drug hypersensitivity [Unknown]
  - Aggression [Recovering/Resolving]
  - Tremor [Recovering/Resolving]
  - Food craving [Unknown]
  - Weight increased [Unknown]
  - Sexual dysfunction [Unknown]
  - Rib fracture [Unknown]
  - Frustration tolerance decreased [Unknown]
  - Anger [Unknown]

NARRATIVE: CASE EVENT DATE: 20180101
